FAERS Safety Report 6898046-7 (Version None)
Quarter: 2010Q3

REPORT INFORMATION
  Report Type: 
  Country: None (occurrence: None)
  Receive Date: 20100802
  Receipt Date: 20070828
  Transmission Date: 20110219
  Serious: Yes (Other)
  Sender: FDA-Public Use
  Company Number: US-PFIZER INC-2007072267

PATIENT
  Sex: Female

DRUGS (3)
  1. LYRICA [Suspect]
     Dates: start: 20070701
  2. ACE INHIBITOR NOS [Suspect]
  3. DIURETICS [Suspect]

REACTIONS (2)
  - OEDEMA [None]
  - OEDEMA PERIPHERAL [None]
